FAERS Safety Report 7934960-9 (Version None)
Quarter: 2011Q4

REPORT INFORMATION
  Report Type: 
  Country: None (occurrence: None)
  Receive Date: 20111118
  Receipt Date: 20111107
  Transmission Date: 20120403
  Serious: Yes (Other)
  Sender: FDA-Public Use
  Company Number: 2011AP002643

PATIENT
  Age: 63 Year
  Sex: Female

DRUGS (3)
  1. LEVOTHYROXINE SODIUM [Concomitant]
  2. TERBINAFINE HYDROCHLORIDE [Suspect]
     Indication: FUNGAL INFECTION
     Dosage: 250 MG, PO, QD
     Route: 048
  3. COD LIVER OIL FORTIFIED TAB [Concomitant]

REACTIONS (2)
  - ERYTHEMA MULTIFORME [None]
  - MENTAL DISORDER [None]
